FAERS Safety Report 23713610 (Version 1)
Quarter: 2024Q2

REPORT INFORMATION
  Report Type: Spontaneous
  Country: CH (occurrence: CH)
  Receive Date: 20240405
  Receipt Date: 20240405
  Transmission Date: 20240716
  Serious: Yes (Hospitalization, Other)
  Sender: FDA-Public Use
  Company Number: None

PATIENT
  Sex: Male

DRUGS (3)
  1. KEYTRUDA [Suspect]
     Active Substance: PEMBROLIZUMAB
     Dosage: STRENGTH: 100 MG; 200 MG IN TOTAL
     Route: 041
     Dates: start: 20240228, end: 20240228
  2. ALIMTA [Suspect]
     Active Substance: PEMETREXED DISODIUM
     Dosage: IN TOTAL
     Dates: start: 20240228, end: 20240228
  3. CARBOPLATIN [Suspect]
     Active Substance: CARBOPLATIN
     Dosage: IN TOTAL
     Dates: start: 20240228, end: 20240228

REACTIONS (1)
  - Atrial fibrillation [Recovering/Resolving]

NARRATIVE: CASE EVENT DATE: 20240302
